FAERS Safety Report 18709736 (Version 1)
Quarter: 2021Q1

REPORT INFORMATION
  Report Type: Spontaneous
  Country: US (occurrence: US)
  Receive Date: 20210107
  Receipt Date: 20210107
  Transmission Date: 20210419
  Serious: Yes (Death, Other)
  Sender: FDA-Public Use
  Company Number: US-SUN PHARMACEUTICAL INDUSTRIES LTD-2020R1-274132

PATIENT
  Age: 49 Year
  Sex: Male

DRUGS (1)
  1. VALPROIC ACID. [Suspect]
     Active Substance: VALPROIC ACID
     Indication: BIPOLAR I DISORDER
     Dosage: UNK (INCREASE IN DOSAGE FROM 500 TO 1,000 MG)
     Route: 065

REACTIONS (2)
  - Encephalopathy [Fatal]
  - Hepatic failure [Unknown]
